FAERS Safety Report 8893948 (Version 2)
Quarter: 2012Q4

REPORT INFORMATION
  Report Type: 
  Country: NL (occurrence: NL)
  Receive Date: 20121108
  Receipt Date: 20121225
  Transmission Date: 20130627
  Serious: Yes (Other)
  Sender: FDA-Public Use
  Company Number: NL-JNJFOC-20121101849

PATIENT
  Sex: Male
  Weight: 119 kg

DRUGS (6)
  1. PREZISTA [Suspect]
     Indication: HIV INFECTION
     Dosage: total daily dose 1200mg
     Route: 048
     Dates: start: 20070717
  2. INTELENCE [Suspect]
     Indication: HIV INFECTION
     Dosage: total daily dose 400mg
     Route: 048
  3. RITONAVIR [Suspect]
     Indication: HIV INFECTION
     Dosage: total daily dose 200mg
     Route: 048
     Dates: start: 20070717
  4. DIDANOSINE [Suspect]
     Indication: HIV INFECTION
     Dosage: total daily dose 400mg
     Route: 048
     Dates: start: 20070717
  5. LAMIVUDINE [Suspect]
     Indication: HIV INFECTION
     Dosage: total daily dose 300mg
     Route: 048
     Dates: start: 20010701
  6. VALACICLOVIR [Suspect]
     Indication: HIV INFECTION
     Dosage: total daily dose 500mg
     Route: 048
     Dates: start: 20051014

REACTIONS (1)
  - Nephrolithiasis [Not Recovered/Not Resolved]
